FAERS Safety Report 6173606-X (Version None)
Quarter: 2009Q2

REPORT INFORMATION
  Report Type: 
  Country: None (occurrence: None)
  Receive Date: 20090430
  Receipt Date: 20090421
  Transmission Date: 20091009
  Serious: Yes (Other)
  Sender: FDA-Public Use
  Company Number: TR-WATSON-2009-02789

PATIENT
  Age: 65 Year
  Sex: Female

DRUGS (3)
  1. IRINOTECAN HYDROCHLORIDE [Suspect]
     Indication: COLON CANCER
     Dosage: UNK
     Route: 042
  2. FLUOROURACIL [Suspect]
     Indication: COLON CANCER
     Dosage: UNK
  3. LEUCOVORIN CALCIUM [Concomitant]
     Indication: DRUG TOXICITY PROPHYLAXIS
     Dosage: UNK

REACTIONS (1)
  - ACUTE LYMPHOCYTIC LEUKAEMIA [None]
